FAERS Safety Report 15846969 (Version 1)
Quarter: 2019Q1

REPORT INFORMATION
  Report Type: Report from Study
  Country: None (occurrence: US)
  Receive Date: 20190121
  Receipt Date: 20190121
  Transmission Date: 20190417
  Serious: Yes (Other)
  Sender: FDA-Public Use
  Company Number: US-ABBVIE-19K-163-2624827-00

PATIENT
  Age: 74 Year
  Sex: Female

DRUGS (1)
  1. HUMIRA [Suspect]
     Active Substance: ADALIMUMAB
     Indication: PSORIATIC ARTHROPATHY
     Route: 058

REACTIONS (5)
  - Seizure [Unknown]
  - Mouth haemorrhage [Unknown]
  - Kidney infection [Unknown]
  - Urinary incontinence [Unknown]
  - Bite [Unknown]

NARRATIVE: CASE EVENT DATE: 201901
